FAERS Safety Report 25441977 (Version 2)
Quarter: 2025Q2

REPORT INFORMATION
  Report Type: Report from Study
  Country: IT (occurrence: IT)
  Receive Date: 20250616
  Receipt Date: 20250626
  Transmission Date: 20250717
  Serious: Yes (Death, Life-Threatening)
  Sender: MYLAN
  Company Number: IT-INCYTE CORPORATION-2025IN005762

PATIENT
  Age: 64 Year
  Sex: Male
  Weight: 53 kg

DRUGS (24)
  1. LENALIDOMIDE [Suspect]
     Active Substance: LENALIDOMIDE
     Indication: Diffuse large B-cell lymphoma
     Dates: start: 20250325, end: 20250507
  2. LENALIDOMIDE [Suspect]
     Active Substance: LENALIDOMIDE
     Route: 065
     Dates: start: 20250325, end: 20250507
  3. LENALIDOMIDE [Suspect]
     Active Substance: LENALIDOMIDE
     Route: 065
     Dates: start: 20250325, end: 20250507
  4. LENALIDOMIDE [Suspect]
     Active Substance: LENALIDOMIDE
     Dates: start: 20250325, end: 20250507
  5. TAFASITAMAB [Suspect]
     Active Substance: TAFASITAMAB
     Indication: Diffuse large B-cell lymphoma
  6. TAFASITAMAB [Suspect]
     Active Substance: TAFASITAMAB
     Route: 065
  7. TAFASITAMAB [Suspect]
     Active Substance: TAFASITAMAB
     Route: 065
  8. TAFASITAMAB [Suspect]
     Active Substance: TAFASITAMAB
  9. ACYCLOVIR [Concomitant]
     Active Substance: ACYCLOVIR
     Indication: Infection prophylaxis
     Dosage: 400 MILLIGRAM, QD
     Dates: start: 20250325
  10. ACYCLOVIR [Concomitant]
     Active Substance: ACYCLOVIR
     Dosage: 400 MILLIGRAM, QD
     Route: 048
     Dates: start: 20250325
  11. ACYCLOVIR [Concomitant]
     Active Substance: ACYCLOVIR
     Dosage: 400 MILLIGRAM, QD
     Route: 048
     Dates: start: 20250325
  12. ACYCLOVIR [Concomitant]
     Active Substance: ACYCLOVIR
     Dosage: 400 MILLIGRAM, QD
     Dates: start: 20250325
  13. BACTRIM [Concomitant]
     Active Substance: SULFAMETHOXAZOLE\TRIMETHOPRIM
     Indication: Infection prophylaxis
     Dosage: 160+800 MG, 3X/WEEK
     Dates: start: 20250325
  14. BACTRIM [Concomitant]
     Active Substance: SULFAMETHOXAZOLE\TRIMETHOPRIM
     Dosage: 160+800 MG, 3X/WEEK
     Route: 048
     Dates: start: 20250325
  15. BACTRIM [Concomitant]
     Active Substance: SULFAMETHOXAZOLE\TRIMETHOPRIM
     Dosage: 160+800 MG, 3X/WEEK
     Route: 048
     Dates: start: 20250325
  16. BACTRIM [Concomitant]
     Active Substance: SULFAMETHOXAZOLE\TRIMETHOPRIM
     Dosage: 160+800 MG, 3X/WEEK
     Dates: start: 20250325
  17. ENOXAPARIN [Concomitant]
     Active Substance: ENOXAPARIN
     Indication: Thrombosis prophylaxis
     Dosage: 6000 INTERNATIONAL UNIT, QD
     Dates: start: 20250325
  18. ENOXAPARIN [Concomitant]
     Active Substance: ENOXAPARIN
     Dosage: 6000 INTERNATIONAL UNIT, QD
     Route: 058
     Dates: start: 20250325
  19. ENOXAPARIN [Concomitant]
     Active Substance: ENOXAPARIN
     Dosage: 6000 INTERNATIONAL UNIT, QD
     Route: 058
     Dates: start: 20250325
  20. ENOXAPARIN [Concomitant]
     Active Substance: ENOXAPARIN
     Dosage: 6000 INTERNATIONAL UNIT, QD
     Dates: start: 20250325
  21. EPCORITAMAB [Concomitant]
     Active Substance: EPCORITAMAB
     Indication: Diffuse large B-cell lymphoma
  22. EPCORITAMAB [Concomitant]
     Active Substance: EPCORITAMAB
     Route: 065
  23. EPCORITAMAB [Concomitant]
     Active Substance: EPCORITAMAB
     Route: 065
  24. EPCORITAMAB [Concomitant]
     Active Substance: EPCORITAMAB

REACTIONS (2)
  - Disease progression [Fatal]
  - Enteritis [Fatal]

NARRATIVE: CASE EVENT DATE: 20250507
